FAERS Safety Report 25389430 (Version 2)
Quarter: 2025Q2

REPORT INFORMATION
  Report Type: Spontaneous
  Country: NL (occurrence: NL)
  Receive Date: 20250603
  Receipt Date: 20250613
  Transmission Date: 20250717
  Serious: No
  Sender: TEVA
  Company Number: None

PATIENT
  Age: 64 Year
  Sex: Female
  Weight: 56 kg

DRUGS (5)
  1. HYDROXYCHLOROQUINE [Suspect]
     Active Substance: HYDROXYCHLOROQUINE
     Indication: Rheumatic disorder
     Dosage: BRAND NAME NOT SPECIFIED, 1D1T
     Route: 048
     Dates: start: 20250418, end: 20250427
  2. CLOPIDOGREL BISULFATE [Concomitant]
     Active Substance: CLOPIDOGREL BISULFATE
     Indication: Product used for unknown indication
     Dosage: 1D1T: TAB FILMOM 75MG (AS BISULF)
     Route: 048
  3. METFORMINE HCL AUROBINDO [Concomitant]
     Indication: Product used for unknown indication
     Route: 048
  4. PANTOPRAZOLE [Concomitant]
     Active Substance: PANTOPRAZOLE
     Indication: Product used for unknown indication
     Dosage: 1D1T: PANTOPRAZOL TABLET MSR/ PANTOPRAZOL AUROBINDO MSR TABLET
     Route: 048
  5. HYDROCHLOORTHIAZIDE AUROBINDO [Concomitant]
     Indication: Product used for unknown indication
     Dosage: 1D1T
     Route: 048

REACTIONS (2)
  - Confusional state [Recovered/Resolved]
  - Staring [Recovered/Resolved]
